FAERS Safety Report 4519841-5 (Version None)
Quarter: 2004Q4

REPORT INFORMATION
  Report Type: 
  Country: None (occurrence: None)
  Receive Date: 20041207
  Receipt Date: 20040824
  Transmission Date: 20050328
  Serious: Yes (Other)
  Sender: FDA-Public Use
  Company Number: PHEH2004US09185

PATIENT
  Sex: Female

DRUGS (6)
  1. MIACALCIN [Suspect]
     Route: 065
     Dates: start: 20020101
  2. SPIRONOLACTONE [Concomitant]
     Dosage: 25 MG, QD
  3. SIMVASTATIN [Concomitant]
     Dosage: 40 MG, QD
  4. LOPRESSOR [Concomitant]
     Dosage: 50 MG, QD
  5. AMLODIPINE BESYLATE [Concomitant]
     Dosage: 5 MG, QD
  6. POTASSIUM [Concomitant]
     Dosage: 40 MG, QD

REACTIONS (5)
  - BACK PAIN [None]
  - LITHOTRIPSY [None]
  - NEPHROLITHIASIS [None]
  - RENAL COLIC [None]
  - STENT PLACEMENT [None]
